FAERS Safety Report 18127194 (Version 4)
Quarter: 2025Q2

REPORT INFORMATION
  Report Type: Spontaneous
  Country: DE (occurrence: DE)
  Receive Date: 20200810
  Receipt Date: 20250629
  Transmission Date: 20250716
  Serious: Yes (Life-Threatening, Hospitalization, Other)
  Sender: AUROBINDO
  Company Number: DE-CHEPLA-C20202243_01

PATIENT
  Age: 25 Year
  Sex: Female

DRUGS (15)
  1. HYDROCHLOROTHIAZIDE [Suspect]
     Active Substance: HYDROCHLOROTHIAZIDE
     Indication: Gestational hypertension
     Dosage: 12.5 MILLIGRAM, TWO TIMES A DAY (25 MILLIGRAM, ONCE A DAY)
     Route: 048
  2. HYDROCHLOROTHIAZIDE [Suspect]
     Active Substance: HYDROCHLOROTHIAZIDE
     Indication: Hypertension
  3. URAPIDIL [Suspect]
     Active Substance: URAPIDIL
     Indication: Hypomagnesaemia
     Route: 042
  4. URAPIDIL [Suspect]
     Active Substance: URAPIDIL
     Indication: Gestational hypertension
     Route: 042
     Dates: start: 20180503, end: 20200521
  5. URAPIDIL [Suspect]
     Active Substance: URAPIDIL
     Indication: Hypertension
  6. HYDRALAZINE [Suspect]
     Active Substance: HYDRALAZINE HYDROCHLORIDE
     Indication: Gestational hypertension
     Dosage: 25 MILLIGRAM, 3 TIMES A DAY
     Route: 042
  7. HYDRALAZINE [Suspect]
     Active Substance: HYDRALAZINE HYDROCHLORIDE
     Indication: Hypomagnesaemia
     Route: 042
  8. HYDRALAZINE [Suspect]
     Active Substance: HYDRALAZINE HYDROCHLORIDE
     Indication: Hypertension
     Dosage: 25 MILLIGRAM, 3 TIMES A DAY (75 MILLIGRAM, ONCE A DAY)
     Route: 048
  9. NIFEDIPINE [Suspect]
     Active Substance: NIFEDIPINE
     Indication: Gestational hypertension
     Dosage: 5 MILLIGRAM, TWO TIMES A DAY (10 MILLIGRAM, ONCE A DAY) AT DISCHARGE
     Route: 048
  10. NIFEDIPINE [Suspect]
     Active Substance: NIFEDIPINE
     Indication: Hypertension
     Dosage: 20 MILLIGRAM, TWO TIMES A DAY (40 MG ONCE A DAY)
     Route: 048
  11. METHYLDOPA [Suspect]
     Active Substance: METHYLDOPA
     Indication: Gestational hypertension
     Dosage: 500 MILLIGRAM, FOUR TIMES/DAY
     Route: 048
     Dates: start: 20180501
  12. METHYLDOPA [Suspect]
     Active Substance: METHYLDOPA
     Indication: Hypertension
  13. METOPROLOL [Suspect]
     Active Substance: METOPROLOL
     Indication: Gestational hypertension
     Dosage: 95 MILLIGRAM, TWO TIMES A DAY (190 MILLIGRAM, ONCE A DAY)
     Route: 048
     Dates: start: 20180501
  14. METOPROLOL [Suspect]
     Active Substance: METOPROLOL
     Indication: Hypertension
  15. DIHYDRALAZINE [Suspect]
     Active Substance: DIHYDRALAZINE
     Indication: Product used for unknown indication
     Dosage: 25 MILLIGRAM, 3 TIMES A DAY
     Route: 042
     Dates: start: 20180501

REACTIONS (17)
  - Drug ineffective [Recovered/Resolved]
  - Aspartate aminotransferase increased [Recovered/Resolved]
  - Alanine aminotransferase increased [Recovered/Resolved]
  - Cortisol free urine increased [Recovered/Resolved]
  - Pre-eclampsia [Recovered/Resolved]
  - Platelet count decreased [Recovered/Resolved]
  - Premature delivery [Recovered/Resolved]
  - Hypomagnesaemia [Recovered/Resolved]
  - Caesarean section [Recovered/Resolved]
  - Hyperplasia adrenal [Recovered/Resolved]
  - Abnormal weight gain [Recovered/Resolved]
  - Haptoglobin decreased [Recovered/Resolved]
  - Blood corticotrophin decreased [Recovered/Resolved]
  - Cortisol increased [Recovered/Resolved]
  - Blood aldosterone increased [Recovered/Resolved]
  - Maternal exposure during pregnancy [Unknown]
  - Exposure during pregnancy [Unknown]
